FAERS Safety Report 9822176 (Version 1)
Quarter: 2014Q1

REPORT INFORMATION
  Report Type: Spontaneous
  Country: IT (occurrence: IT)
  Receive Date: 20140116
  Receipt Date: 20140116
  Transmission Date: 20141002
  Serious: Yes (Hospitalization)
  Sender: FDA-Public Use
  Company Number: PHHY2014IT003281

PATIENT
  Age: 72 Year
  Sex: Male

DRUGS (13)
  1. ALLOPURINOL [Concomitant]
  2. QUETIAPINE [Suspect]
     Dosage: 75 MG, QD
     Route: 048
     Dates: start: 20130910, end: 20130918
  3. RIVOTRIL [Suspect]
     Dosage: 0.62 MG, QD
     Route: 048
     Dates: start: 20130910, end: 20130918
  4. TRAZODONE [Suspect]
     Dates: start: 20130910, end: 20130918
  5. LANTUS [Concomitant]
  6. CLEXANE [Concomitant]
  7. SPIRIVA [Concomitant]
  8. SERETIDE [Concomitant]
  9. HUMALOG [Concomitant]
  10. METOCLOPRAMIDE [Concomitant]
  11. RANITIDINE [Concomitant]
  12. LEVOFLOXACIN [Concomitant]
  13. CARVEDILOL [Concomitant]

REACTIONS (1)
  - Sopor [Recovering/Resolving]
